FAERS Safety Report 16126633 (Version 1)
Quarter: 2019Q2

REPORT INFORMATION
  Report Type: Spontaneous
  Country: US (occurrence: US)
  Receive Date: 20190327
  Receipt Date: 20190327
  Transmission Date: 20190711
  Serious: Yes (Death, Life-Threatening, Hospitalization, Disabling, Other)
  Sender: FDA-Public Use
  Company Number: None

PATIENT
  Age: 24 Year
  Sex: Male

DRUGS (4)
  1. VRAYLAR [Suspect]
     Active Substance: CARIPRAZINE
     Indication: SCHIZOPHRENIA
     Dosage: ?          QUANTITY:1 INJECTION(S);?
     Route: 008
     Dates: start: 20140712, end: 20180128
  2. GEODON [Suspect]
     Active Substance: ZIPRASIDONE HYDROCHLORIDE\ZIPRASIDONE MESYLATE
  3. ABILIFY [Suspect]
     Active Substance: ARIPIPRAZOLE
  4. INVEGA [Suspect]
     Active Substance: PALIPERIDONE

REACTIONS (2)
  - Drug hypersensitivity [None]
  - Sinusitis [None]

NARRATIVE: CASE EVENT DATE: 20170421
